FAERS Safety Report 10997002 (Version 2)
Quarter: 2015Q2

REPORT INFORMATION
  Report Type: Spontaneous
  Country: US (occurrence: None)
  Receive Date: 20150406
  Receipt Date: 20150506
  Transmission Date: 20150821
  Serious: No
  Sender: FDA-Public Use
  Company Number: ADR-2015-00643

PATIENT
  Sex: Female

DRUGS (4)
  1. COMPOUNDED BACLOFEN INTRATHECAL [Suspect]
     Active Substance: BACLOFEN
     Indication: PAIN
  2. MARCAINE [Suspect]
     Active Substance: BUPIVACAINE HYDROCHLORIDE
  3. DILAUDID [Suspect]
     Active Substance: HYDROMORPHONE HYDROCHLORIDE
  4. MORPHINE INTRATHECAL [Suspect]
     Active Substance: MORPHINE
     Dosage: CONCENTRATION/DOSE NOT SPECIFIED?

REACTIONS (6)
  - Scar [None]
  - Medical device complication [None]
  - Device inversion [None]
  - Implant site infection [None]
  - Dysstasia [None]
  - Drug dose omission [None]
